FAERS Safety Report 10588920 (Version 1)
Quarter: 2014Q4

REPORT INFORMATION
  Report Type: Spontaneous
  Country: US (occurrence: US)
  Receive Date: 20141117
  Receipt Date: 20141117
  Transmission Date: 20150529
  Serious: No
  Sender: FDA-Public Use
  Company Number: US-DRREDDYS-USA/USA/14/0042954

PATIENT
  Age: 54 Year
  Sex: Female

DRUGS (1)
  1. SUMATRIPTAN INJECTION USP, 6 MG/0.5 ML [Suspect]
     Active Substance: SUMATRIPTAN
     Indication: MIGRAINE
     Dosage: USE 1 INJECTION AT ONSET OF MIGRAINE AND MAY REPEAT AFTER 2 HOURS
     Route: 065
     Dates: start: 201405

REACTIONS (2)
  - Product physical issue [Unknown]
  - Drug dose omission [Unknown]
